FAERS Safety Report 16814909 (Version 3)
Quarter: 2019Q4

REPORT INFORMATION
  Report Type: Report from Study
  Country: ZA (occurrence: ZA)
  Receive Date: 20190917
  Receipt Date: 20191029
  Transmission Date: 20200122
  Serious: Yes (Other)
  Sender: FDA-Public Use
  Company Number: PHHY2019ZA213292

PATIENT
  Sex: Female

DRUGS (2)
  1. COSENTYX [Suspect]
     Active Substance: SECUKINUMAB
     Indication: ANKYLOSING SPONDYLITIS
     Dosage: 150 MG, UNK
     Route: 058
     Dates: start: 20190904
  2. MEDROL [Suspect]
     Active Substance: METHYLPREDNISOLONE
     Indication: PRODUCT USED FOR UNKNOWN INDICATION
     Dosage: UNK
     Route: 065

REACTIONS (14)
  - Colitis [Recovering/Resolving]
  - White blood cells urine positive [Recovering/Resolving]
  - Abdominal discomfort [Recovering/Resolving]
  - Bacterial infection [Unknown]
  - Kidney infection [Recovering/Resolving]
  - Condition aggravated [Recovering/Resolving]
  - Malaise [Unknown]
  - Gingival pain [Unknown]
  - Haematuria [Recovering/Resolving]
  - Liver function test abnormal [Unknown]
  - Gingival bleeding [Unknown]
  - Abdominal pain [Unknown]
  - Diarrhoea [Recovered/Resolved]
  - Iron deficiency [Unknown]
